FAERS Safety Report 7039847-4 (Version None)
Quarter: 2010Q4

REPORT INFORMATION
  Report Type: 
  Country: None (occurrence: None)
  Receive Date: 20101012
  Receipt Date: 20100929
  Transmission Date: 20110411
  Serious: Yes (Death)
  Sender: FDA-Public Use
  Company Number: JP-ELI_LILLY_AND_COMPANY-JP201009003936

PATIENT
  Sex: Male
  Weight: 64.5 kg

DRUGS (13)
  1. ZYPREXA [Suspect]
     Indication: BIPOLAR I DISORDER
     Dosage: 20 MG, DAILY (1/D)
     Route: 048
     Dates: start: 20080301, end: 20080401
  2. ZYPREXA [Suspect]
     Dosage: 5 MG, DAILY (1/D)
     Route: 048
     Dates: start: 20100826, end: 20100903
  3. RISPERDAL [Concomitant]
     Indication: BIPOLAR I DISORDER
     Dosage: 4 MG, DAILY (1/D)
     Route: 048
     Dates: start: 20080301
  4. RISPERDAL [Concomitant]
     Dosage: 4 MG, DAILY (1/D)
     Route: 048
     Dates: start: 20100826, end: 20100903
  5. LIMAS [Concomitant]
     Indication: BIPOLAR I DISORDER
     Dosage: 800-1000 MG, DAILY (1/D)
     Route: 048
     Dates: start: 20080301
  6. LIMAS [Concomitant]
     Dosage: 400 MG, DAILY (1/D)
     Route: 048
     Dates: start: 20100426, end: 20100825
  7. LIMAS [Concomitant]
     Dosage: 800 MG, UNK
     Route: 048
     Dates: start: 20100826, end: 20100829
  8. LIMAS [Concomitant]
     Dosage: 1200 MG, DAILY (1/D)
     Route: 048
     Dates: start: 20100830, end: 20100903
  9. GOODMIN [Concomitant]
     Indication: INSOMNIA
     Dosage: 0.5 MG, DAILY (1/D)
     Route: 048
     Dates: start: 20100426, end: 20100829
  10. GOODMIN [Concomitant]
     Dosage: 0.5 MG, DAILY (1/D)
     Route: 048
     Dates: start: 20100830, end: 20100903
  11. ROHYPNOL [Concomitant]
     Indication: INSOMNIA
     Dosage: 2 MG, DAILY (1/D)
     Route: 048
     Dates: start: 20100426, end: 20100829
  12. ROHYPNOL [Concomitant]
     Dosage: 4 MG, DAILY (1/D)
     Route: 048
     Dates: start: 20100830, end: 20100903
  13. TEGRETOL [Concomitant]
     Indication: BIPOLAR I DISORDER
     Dosage: 300 MG, DAILY (1/D)
     Route: 048
     Dates: start: 20080301

REACTIONS (3)
  - DIZZINESS [None]
  - OFF LABEL USE [None]
  - SUDDEN DEATH [None]
